FAERS Safety Report 7720165-3 (Version None)
Quarter: 2011Q3

REPORT INFORMATION
  Report Type: 
  Country: None (occurrence: None)
  Receive Date: 20110826
  Receipt Date: 20110826
  Transmission Date: 20111222
  Serious: Yes (Disabling, Other)
  Sender: FDA-Public Use
  Company Number: None

PATIENT
  Age: 32 Year
  Sex: Female
  Weight: 54.4316 kg

DRUGS (3)
  1. IBUPROFEN [Suspect]
     Indication: PAIN
     Dosage: 800 MG 1 X 31 DAY MOUTH
     Route: 048
     Dates: start: 20110811
  2. IBUPROFEN [Suspect]
     Indication: PAIN
     Dosage: 800 MG 1 X 31 DAY MOUTH
     Route: 048
     Dates: start: 20110812, end: 20110813
  3. IBUPROFEN [Suspect]
     Indication: PAIN
     Dosage: 800 MG 1 X 31 DAY MOUTH
     Route: 048
     Dates: start: 20110810

REACTIONS (6)
  - FEELING ABNORMAL [None]
  - BLOOD ALBUMIN ABNORMAL [None]
  - INCORRECT DOSE ADMINISTERED [None]
  - PAIN [None]
  - CONDITION AGGRAVATED [None]
  - DRUG INEFFECTIVE [None]
